FAERS Safety Report 7958089-9 (Version None)
Quarter: 2011Q4

REPORT INFORMATION
  Report Type: 
  Country: None (occurrence: None)
  Receive Date: 20111205
  Receipt Date: 20111124
  Transmission Date: 20120403
  Serious: Yes (Hospitalization)
  Sender: FDA-Public Use
  Company Number: DE-ASTRAZENECA-2011SE70117

PATIENT
  Age: 26452 Day
  Sex: Female
  Weight: 65 kg

DRUGS (6)
  1. ASPIRIN [Concomitant]
     Indication: CORONARY ARTERY DISEASE
     Dosage: 100 DAILY
     Route: 048
     Dates: start: 20110929, end: 20111020
  2. SIMVASTATIN [Interacting]
     Route: 048
     Dates: start: 20110929, end: 20111014
  3. RAMIPRIL [Concomitant]
     Indication: HYPERTENSION
     Route: 048
     Dates: start: 20110929, end: 20111020
  4. BRILIQUE [Suspect]
     Indication: CORONARY ARTERY DISEASE
     Route: 048
     Dates: start: 20110929, end: 20111020
  5. RAMIPRIL/HCT [Concomitant]
     Indication: HYPERTENSION
     Dosage: 5/25 DAILY
     Route: 048
     Dates: start: 20110929, end: 20111020
  6. METOPROLOL [Concomitant]
     Indication: CORONARY ARTERY DISEASE
     Route: 048
     Dates: start: 20110929, end: 20111020

REACTIONS (3)
  - TRANSAMINASES INCREASED [None]
  - DRUG INTERACTION [None]
  - PERIHEPATIC DISCOMFORT [None]
